FAERS Safety Report 14536646 (Version 1)
Quarter: 2018Q1

REPORT INFORMATION
  Report Type: Spontaneous
  Country: US (occurrence: US)
  Receive Date: 20180215
  Receipt Date: 20180215
  Transmission Date: 20180509
  Serious: Yes (Hospitalization)
  Sender: FDA-Public Use
  Company Number: None

PATIENT
  Age: 88 Year
  Sex: Male
  Weight: 116 kg

DRUGS (16)
  1. VITD [Concomitant]
  2. COQ10 [Concomitant]
     Active Substance: UBIDECARENONE
  3. MAGOX [Concomitant]
  4. P [Concomitant]
  5. PLAVIX [Concomitant]
     Active Substance: CLOPIDOGREL BISULFATE
  6. COZAAR [Suspect]
     Active Substance: LOSARTAN POTASSIUM
     Indication: HYPERTENSION
     Route: 048
  7. IBUPROFEN. [Suspect]
     Active Substance: IBUPROFEN
     Indication: PAIN
     Route: 048
  8. KEFLEX [Concomitant]
     Active Substance: CEPHALEXIN
  9. VITB12 [Concomitant]
  10. OMEGA 3 [Concomitant]
     Active Substance: OMEGA-3 FATTY ACIDS
  11. MVI [Concomitant]
     Active Substance: VITAMINS
  12. TURMERIC [Concomitant]
     Active Substance: HERBALS\TURMERIC
  13. ASA [Concomitant]
     Active Substance: ASPIRIN
  14. AMIODARONE [Concomitant]
     Active Substance: AMIODARONE
  15. TOPROL XL [Concomitant]
     Active Substance: METOPROLOL SUCCINATE
  16. PRAVASTATIN. [Concomitant]
     Active Substance: PRAVASTATIN

REACTIONS (7)
  - Blood potassium increased [None]
  - Infection [None]
  - Drug hypersensitivity [None]
  - Hyperkalaemia [None]
  - Acute kidney injury [None]
  - Nephropathy [None]
  - Hypophagia [None]

NARRATIVE: CASE EVENT DATE: 20170610
